FAERS Safety Report 21584962 (Version 2)
Quarter: 2023Q1

REPORT INFORMATION
  Report Type: Spontaneous
  Country: DE (occurrence: DE)
  Receive Date: 20221111
  Receipt Date: 20230104
  Transmission Date: 20230418
  Serious: Yes (Other)
  Sender: FDA-Public Use
  Company Number: None

PATIENT
  Age: 84 Year
  Sex: Female
  Weight: 50 kg

DRUGS (1)
  1. PAXLOVID [Suspect]
     Active Substance: NIRMATRELVIR\RITONAVIR
     Indication: COVID-19 treatment
     Dosage: FREQ:12 H;2 TABLETS PF-07321332, 1 TABLET RITONAVIR IN THE MORNING AND EVENING
     Route: 048
     Dates: start: 20220912, end: 20220917

REACTIONS (11)
  - Pericarditis [Recovered/Resolved]
  - Myocarditis [Unknown]
  - Congestive hepatopathy [Unknown]
  - Atrial fibrillation [Recovered/Resolved]
  - Superinfection bacterial [Recovered/Resolved]
  - Pleural effusion [Recovered/Resolved]
  - Cough [Recovered/Resolved]
  - Oedema peripheral [Recovered/Resolved]
  - COVID-19 [Recovered/Resolved]
  - Hypotonia [Recovered/Resolved]
  - Dizziness [Recovered/Resolved]

NARRATIVE: CASE EVENT DATE: 20221001
